FAERS Safety Report 9068583 (Version 1)
Quarter: 2013Q1

REPORT INFORMATION
  Report Type: Spontaneous
  Country: US (occurrence: None)
  Receive Date: 20130212
  Receipt Date: 20130212
  Transmission Date: 20140127
  Serious: Yes (Other)
  Sender: FDA-Public Use
  Company Number: None

PATIENT
  Age: 23 Year
  Sex: Female
  Weight: 90.72 kg

DRUGS (2)
  1. MIRENA IUD, 20MCG, BAYER [Suspect]
  2. ETRADILOL [Concomitant]

REACTIONS (13)
  - Depression [None]
  - Mood swings [None]
  - Irritability [None]
  - Suicidal ideation [None]
  - Abdominal discomfort [None]
  - Acne [None]
  - Fatigue [None]
  - Loss of libido [None]
  - Breast tenderness [None]
  - Breast swelling [None]
  - Menorrhagia [None]
  - Headache [None]
  - Nausea [None]
